FAERS Safety Report 18532370 (Version 1)
Quarter: 2020Q4

REPORT INFORMATION
  Report Type: Spontaneous
  Country: FR (occurrence: FR)
  Receive Date: 20201123
  Receipt Date: 20201123
  Transmission Date: 20210114
  Serious: Yes (Other)
  Sender: FDA-Public Use
  Company Number: FR-TEVA-2020-FR-1850304

PATIENT
  Age: 52 Year
  Sex: Female

DRUGS (2)
  1. TRAMADOL BASE [Suspect]
     Active Substance: TRAMADOL
     Dosage: UNIT DOSE 400MG
     Route: 048
     Dates: start: 2019
  2. SERESTA 50 MG, COMPRIME SECABLE [Suspect]
     Active Substance: OXAZEPAM
     Dosage: UP TO 10 CPS / DAY, SCORED
     Route: 048
     Dates: start: 2017

REACTIONS (1)
  - Drug dependence [Not Recovered/Not Resolved]
